FAERS Safety Report 14441420 (Version 3)
Quarter: 2018Q3

REPORT INFORMATION
  Report Type: Spontaneous
  Country: US (occurrence: US)
  Receive Date: 20180125
  Receipt Date: 20180830
  Transmission Date: 20181010
  Serious: Yes (Hospitalization)
  Sender: FDA-Public Use
  Company Number: US-DSJP-DSU-2017-138169

PATIENT

DRUGS (2)
  1. BENICAR HCT [Suspect]
     Active Substance: HYDROCHLOROTHIAZIDE\OLMESARTAN MEDOXOMIL
     Indication: PRODUCT USED FOR UNKNOWN INDICATION
     Dosage: 40?25 MG, QD
     Route: 048
     Dates: start: 20071016, end: 20090408
  2. BENICAR [Suspect]
     Active Substance: OLMESARTAN MEDOXOMIL
     Indication: PRODUCT USED FOR UNKNOWN INDICATION
     Dosage: 40 MG, UNK
     Dates: start: 20071016, end: 20090408

REACTIONS (3)
  - Pancreatitis acute [Recovering/Resolving]
  - Abdominal hernia [Unknown]
  - Sprue-like enteropathy [Unknown]

NARRATIVE: CASE EVENT DATE: 2008
